FAERS Safety Report 5801180-3 (Version None)
Quarter: 2008Q3

REPORT INFORMATION
  Report Type: 
  Country: None (occurrence: None)
  Receive Date: 20080707
  Receipt Date: 20080625
  Transmission Date: 20090109
  Serious: No
  Sender: FDA-Public Use
  Company Number: CN-ELI_LILLY_AND_COMPANY-CN200806005868

PATIENT
  Age: 38 Year
  Sex: Female

DRUGS (4)
  1. ZYPREXA [Suspect]
     Indication: SCHIZOPHRENIA
     Dosage: 5 MG, 3/D
     Route: 048
     Dates: start: 20080611, end: 20080624
  2. BATILOL [Concomitant]
     Indication: WHITE BLOOD CELL COUNT DECREASED
     Dosage: 50 MG, 3/D
     Route: 048
     Dates: start: 20080612
  3. INOSINE [Concomitant]
     Indication: WHITE BLOOD CELL COUNT DECREASED
     Dosage: 200 MG, 3/D
     Route: 048
     Dates: start: 20080612
  4. HALOPERIDOL [Concomitant]
     Indication: MANIA
     Route: 030

REACTIONS (4)
  - HAEMOGLOBIN DECREASED [None]
  - PLATELET COUNT DECREASED [None]
  - RED BLOOD CELL COUNT DECREASED [None]
  - WHITE BLOOD CELL COUNT DECREASED [None]
